FAERS Safety Report 5123910-9 (Version None)
Quarter: 2006Q3

REPORT INFORMATION
  Report Type: 
  Country: None (occurrence: None)
  Receive Date: 20060911
  Receipt Date: 20060612
  Transmission Date: 20061208
  Serious: Yes (Other)
  Sender: FDA-Public Use
  Company Number: 200615258US

PATIENT
  Sex: Female

DRUGS (1)
  1. APIDRA [Suspect]

REACTIONS (1)
  - HYPOGLYCAEMIA [None]
